FAERS Safety Report 7724813-3 (Version None)
Quarter: 2011Q3

REPORT INFORMATION
  Report Type: 
  Country: None (occurrence: None)
  Receive Date: 20110901
  Receipt Date: 20110826
  Transmission Date: 20111222
  Serious: Yes (Other)
  Sender: FDA-Public Use
  Company Number: GB-PFIZER INC-2011172056

PATIENT
  Age: 39 Year
  Sex: Male
  Weight: 60 kg

DRUGS (2)
  1. VARENICLINE TARTRATE [Suspect]
     Indication: SMOKING CESSATION THERAPY
     Dosage: 0.5 MG, UNK
     Route: 048
     Dates: start: 20110721, end: 20110101
  2. VARENICLINE TARTRATE [Suspect]
     Dosage: 1 MG, 2X/DAY
     Route: 048
     Dates: start: 20110101

REACTIONS (1)
  - SOMNAMBULISM [None]
